FAERS Safety Report 5269114-0 (Version None)
Quarter: 2007Q1

REPORT INFORMATION
  Report Type: 
  Country: None (occurrence: None)
  Receive Date: 20070319
  Receipt Date: 20070306
  Transmission Date: 20070707
  Serious: Yes (Other)
  Sender: FDA-Public Use
  Company Number: PHBS2007CN04325

PATIENT

DRUGS (1)
  1. GLEEVEC [Suspect]
     Indication: CHRONIC MYELOID LEUKAEMIA
     Dosage: 400 MG, QD
     Route: 048
     Dates: start: 20070224

REACTIONS (5)
  - BLAST CELLS PRESENT [None]
  - LUNG INFECTION [None]
  - LYMPHADENOPATHY [None]
  - PYREXIA [None]
  - WHITE BLOOD CELL COUNT INCREASED [None]
